FAERS Safety Report 13884223 (Version 1)
Quarter: 2017Q3

REPORT INFORMATION
  Report Type: Spontaneous
  Country: IN (occurrence: IN)
  Receive Date: 20170821
  Receipt Date: 20170821
  Transmission Date: 20171127
  Serious: Yes (Hospitalization, Other)
  Sender: FDA-Public Use
  Company Number: IN-TORRENT-00001306

PATIENT
  Age: 68 Year
  Sex: Female

DRUGS (4)
  1. RISPERIDONE. [Suspect]
     Active Substance: RISPERIDONE
  2. SODIUM VALPROATE [Suspect]
     Active Substance: VALPROATE SODIUM
  3. TRIHEXYPHENIDYL [Concomitant]
     Active Substance: TRIHEXYPHENIDYL
  4. CLOZAPINE. [Suspect]
     Active Substance: CLOZAPINE

REACTIONS (3)
  - Off label use [Unknown]
  - Catatonia [Recovering/Resolving]
  - Pancytopenia [Unknown]
